FAERS Safety Report 18119900 (Version 1)
Quarter: 2020Q3

REPORT INFORMATION
  Report Type: Spontaneous
  Country: AU (occurrence: AU)
  Receive Date: 20200806
  Receipt Date: 20200806
  Transmission Date: 20201103
  Serious: Yes (Death, Hospitalization, Other)
  Sender: FDA-Public Use
  Company Number: AU-IBIGEN-2020.09146

PATIENT
  Age: 63 Year
  Sex: Male

DRUGS (5)
  1. HEPARIN [Concomitant]
     Active Substance: HEPARIN SODIUM
  2. PIPERACILLIN/TAZOBACTAM [Suspect]
     Active Substance: PIPERACILLIN SODIUM\TAZOBACTAM SODIUM
     Indication: EVIDENCE BASED TREATMENT
     Dosage: (4.5?G THREE TIMES DAILY ON DAY 2 AND ON DAY 3, 2.25?G THREE TIMES DAILY ON DAY 4 AND ON DAY 5)
     Route: 042
  3. VANCOMYCIN [Concomitant]
     Active Substance: VANCOMYCIN
     Dosage: 2.5?G LOADING DOSE THEN CONTINUOUS INFUSION ON DAY 3, CONTINUOUS INFUSION ON DAY 4 AND 5
     Route: 042
  4. CLINDAMYCIN. [Concomitant]
     Active Substance: CLINDAMYCIN
     Dosage: 600?MG THREE TIMES DAILY ON DAY 3, 4, 5
  5. MEROPENEM. [Concomitant]
     Active Substance: MEROPENEM
     Dosage: 1?G THREE TIMES DAILY ON DAY 4 AND 5

REACTIONS (27)
  - Liver injury [Fatal]
  - Enteritis [Fatal]
  - Blood urea increased [Fatal]
  - Blood albumin decreased [Fatal]
  - Intravascular haemolysis [Fatal]
  - Aspartate aminotransferase increased [Fatal]
  - Enterococcal infection [Fatal]
  - Drug ineffective [Fatal]
  - Bronchial haemorrhage [Fatal]
  - White blood cell count increased [Fatal]
  - Blood lactate dehydrogenase increased [None]
  - Septic shock [Fatal]
  - Renal failure [Fatal]
  - Cholelithiasis [Fatal]
  - Portal vein thrombosis [Fatal]
  - Hyperbilirubinaemia [Fatal]
  - Haemoglobin decreased [Fatal]
  - Blood creatinine increased [Fatal]
  - Clostridial infection [Fatal]
  - Hepatic infarction [None]
  - Liver abscess [Fatal]
  - Left ventricular dysfunction [Fatal]
  - Acute kidney injury [Fatal]
  - Platelet count decreased [Fatal]
  - Alanine aminotransferase increased [Fatal]
  - Cardiogenic shock [Fatal]
  - International normalised ratio increased [Fatal]
